FAERS Safety Report 4454195-4 (Version None)
Quarter: 2004Q3

REPORT INFORMATION
  Report Type: 
  Country: None (occurrence: None)
  Receive Date: 20040826
  Receipt Date: 20040720
  Transmission Date: 20050211
  Serious: No
  Sender: FDA-Public Use
  Company Number: WAES 0407USA01727

PATIENT
  Age: 74 Year
  Sex: Male

DRUGS (2)
  1. ZETIA [Suspect]
     Indication: INFECTION
     Dosage: PO
     Route: 048
     Dates: start: 20040201
  2. METHOTREXATE [Concomitant]

REACTIONS (2)
  - MEDICATION ERROR [None]
  - OEDEMA PERIPHERAL [None]
